FAERS Safety Report 23090479 (Version 4)
Quarter: 2024Q3

REPORT INFORMATION
  Report Type: Spontaneous
  Country: US (occurrence: US)
  Receive Date: 20231020
  Receipt Date: 20240802
  Transmission Date: 20241017
  Serious: Yes (Other)
  Sender: PFIZER
  Company Number: US-PFIZER INC-PV202300171451

PATIENT
  Age: 68 Year
  Sex: Female
  Weight: 108.86 kg

DRUGS (3)
  1. IBRANCE [Suspect]
     Active Substance: PALBOCICLIB
     Indication: Breast cancer metastatic
     Dosage: 125 MG
     Dates: start: 2022
  2. IBRANCE [Suspect]
     Active Substance: PALBOCICLIB
     Dosage: 125 MG, DAILY
     Route: 048
     Dates: start: 2024
  3. IBRANCE [Suspect]
     Active Substance: PALBOCICLIB
     Dosage: 100MG PO (PER ORAL) QD (ONCE A DAY) DAYS 1-21 THEN HOLD 7 DAYS EVERY 28 DAYS
     Route: 048

REACTIONS (1)
  - Atrial fibrillation [Unknown]
